FAERS Safety Report 4700848-X (Version None)
Quarter: 2005Q2

REPORT INFORMATION
  Report Type: 
  Country: None (occurrence: None)
  Receive Date: 20050209
  Receipt Date: 20050209
  Transmission Date: 20051028
  Serious: No
  Sender: FDA-Public Use
  Company Number: None

PATIENT
  Sex: Female
  Weight: 83.4619 kg

DRUGS (2)
  1. PROPRANOLOL [Suspect]
     Indication: HEART RATE IRREGULAR
     Dosage: ONE BID   LIFETIME
  2. PROPRANOLOL [Suspect]
     Indication: MITRAL VALVE PROLAPSE
     Dosage: ONE BID   LIFETIME

REACTIONS (1)
  - VENTRICULAR EXTRASYSTOLES [None]
